FAERS Safety Report 6474889-9 (Version None)
Quarter: 2009Q4

REPORT INFORMATION
  Report Type: 
  Country: None (occurrence: None)
  Receive Date: 20091204
  Receipt Date: 20090506
  Transmission Date: 20100525
  Serious: Yes (Other)
  Sender: FDA-Public Use
  Company Number: BE-ELI_LILLY_AND_COMPANY-BE200902003604

PATIENT
  Age: 48 Year
  Sex: Male
  Weight: 104 kg

DRUGS (7)
  1. CYMBALTA [Suspect]
     Indication: DEPRESSION
     Dosage: 30 MG, UNKNOWN
     Route: 048
     Dates: start: 20081030
  2. CYMBALTA [Suspect]
     Dosage: 60 MG, DAILY (1/D)
     Route: 065
     Dates: start: 20080101, end: 20090109
  3. VALIUM [Concomitant]
     Dosage: 10 D/F, EACH EVENING (FOR MORE THAN TWO YEARS)
     Route: 048
  4. RISPERIDONE [Concomitant]
     Dosage: 1/2 TABLET OF 2MG, EACH MORNING
     Route: 048
     Dates: start: 20080401
  5. RISPERIDONE [Concomitant]
     Dosage: 1 TABLET OF 2MG, EACH EVENING
     Dates: start: 20080401
  6. CONTRAMAL [Concomitant]
     Dosage: 50 D/F (ONE TABLET), UNKNOWN TAKEN FOR MORE THAN TWO YEARS
     Route: 048
  7. TRAZOLAN [Concomitant]
     Dosage: ONE AND HALF TABLET, EACH EVENING (TAKEN FOR MORE THAN TWO YEARS)
     Route: 048

REACTIONS (2)
  - GRAND MAL CONVULSION [None]
  - INSOMNIA [None]
